FAERS Safety Report 20161434 (Version 13)
Quarter: 2022Q3

REPORT INFORMATION
  Report Type: Report from Study
  Country: IL (occurrence: None)
  Receive Date: 20211208
  Receipt Date: 20220804
  Transmission Date: 20221027
  Serious: Yes (Other)
  Sender: FDA-Public Use
  Company Number: IL-Eisai Medical Research-EC-2021-104493

PATIENT
  Age: 63 Year
  Sex: Male
  Weight: 82.2 kg

DRUGS (16)
  1. LENVATINIB [Suspect]
     Active Substance: LENVATINIB
     Indication: Colorectal cancer
     Dosage: STARTING DOSE AT 20 MG, FLUCTUATED DOSAGE
     Route: 048
     Dates: start: 20210614, end: 20211130
  2. LENVATINIB [Suspect]
     Active Substance: LENVATINIB
     Dosage: STARTING DOSE AT 14 MG, FLUCTUATED DOSAGE
     Route: 048
     Dates: start: 20211226, end: 20220322
  3. PEMBROLIZUMAB [Suspect]
     Active Substance: PEMBROLIZUMAB
     Indication: Colorectal cancer
     Route: 041
     Dates: start: 20210614, end: 20211110
  4. PEMBROLIZUMAB [Suspect]
     Active Substance: PEMBROLIZUMAB
     Route: 041
     Dates: start: 20211110, end: 20211110
  5. PEMBROLIZUMAB [Suspect]
     Active Substance: PEMBROLIZUMAB
     Route: 041
     Dates: start: 20211226
  6. FAVEZELIMAB [Suspect]
     Active Substance: FAVEZELIMAB
     Indication: Colorectal cancer
     Route: 041
     Dates: start: 20210614, end: 20211110
  7. FAVEZELIMAB [Suspect]
     Active Substance: FAVEZELIMAB
     Route: 041
     Dates: start: 20211110, end: 20211110
  8. FAVEZELIMAB [Suspect]
     Active Substance: FAVEZELIMAB
     Route: 041
     Dates: start: 20211226
  9. SEROQUEL [Concomitant]
     Active Substance: QUETIAPINE FUMARATE
     Dates: start: 201901
  10. MIRO [Concomitant]
     Dates: start: 201901
  11. OXAZEPAM [Concomitant]
     Active Substance: OXAZEPAM
     Dates: start: 201901
  12. CLOTHIAPINE [Concomitant]
     Active Substance: CLOTHIAPINE
     Dates: start: 201901
  13. CANNABIS SATIVA SUBSP. INDICA TOP [Concomitant]
     Active Substance: CANNABIS SATIVA SUBSP. INDICA TOP
     Dates: start: 201901
  14. STOPIT [Concomitant]
     Dates: start: 201901
  15. FEXOFENADINE HYDROCHLORIDE [Concomitant]
     Active Substance: FEXOFENADINE HYDROCHLORIDE
     Dates: start: 20210817
  16. BETACORTEN [BETAMETHASONE VALERATE] [Concomitant]
     Dates: start: 20210901

REACTIONS (1)
  - Hyperglycaemia [Recovered/Resolved with Sequelae]

NARRATIVE: CASE EVENT DATE: 20211201
